FAERS Safety Report 6344827-8 (Version None)
Quarter: 2009Q3

REPORT INFORMATION
  Report Type: 
  Country: None (occurrence: None)
  Receive Date: 20090904
  Receipt Date: 20090828
  Transmission Date: 20100115
  Serious: Yes (Other)
  Sender: FDA-Public Use
  Company Number: TPA2009A02519

PATIENT
  Age: 43 Year
  Sex: Male
  Weight: 92.5338 kg

DRUGS (1)
  1. PREVACID [Suspect]
     Indication: GASTROOESOPHAGEAL REFLUX DISEASE
     Dosage: 30 MG, 1 IN 1 D, PER ORAL
     Route: 048
     Dates: start: 20070828

REACTIONS (5)
  - EYE INJURY [None]
  - FOREIGN BODY IN EYE [None]
  - INTERVERTEBRAL DISC OPERATION [None]
  - MUSCLE TWITCHING [None]
  - SPINAL LAMINECTOMY [None]
